FAERS Safety Report 12685818 (Version 1)
Quarter: 2016Q3

REPORT INFORMATION
  Report Type: Spontaneous
  Country: PL (occurrence: PL)
  Receive Date: 20160825
  Receipt Date: 20160825
  Transmission Date: 20161109
  Serious: Yes (Disabling)
  Sender: FDA-Public Use
  Company Number: PL-MUNDIPHARMA DS AND PHARMACOVIGILANCE-GBR-2016-0040107

PATIENT
  Age: 65 Year
  Sex: Male
  Weight: 80 kg

DRUGS (2)
  1. SEVREDOL 20 MG [Suspect]
     Active Substance: MORPHINE
     Indication: BONE PAIN
     Dosage: 20 MG, DAILY
     Route: 048
     Dates: start: 2016
  2. SEVREDOL 20 MG [Suspect]
     Active Substance: MORPHINE
     Dosage: 40 MG-60 MG, 2-3 TIMES DAILY
     Route: 048
     Dates: start: 201607

REACTIONS (4)
  - Altered state of consciousness [Recovered/Resolved with Sequelae]
  - Delusion [Recovered/Resolved with Sequelae]
  - Hallucination [Not Recovered/Not Resolved]
  - Spinal cord abscess [Recovered/Resolved with Sequelae]

NARRATIVE: CASE EVENT DATE: 201607
